FAERS Safety Report 7717441-7 (Version None)
Quarter: 2011Q3

REPORT INFORMATION
  Report Type: 
  Country: None (occurrence: None)
  Receive Date: 20110830
  Receipt Date: 20110825
  Transmission Date: 20111222
  Serious: Yes (Death)
  Sender: FDA-Public Use
  Company Number: US-ASTELLAS-2011US004418

PATIENT
  Sex: Male

DRUGS (4)
  1. ERLOTINIB HYDROCHLORIDE [Suspect]
     Dosage: 150 MG, UID/QD
     Route: 048
     Dates: start: 20110411
  2. ERLOTINIB HYDROCHLORIDE [Suspect]
     Dosage: 100 MG, UID/QD
     Route: 048
     Dates: start: 20110401
  3. ERLOTINIB HYDROCHLORIDE [Suspect]
     Indication: PANCREATIC CARCINOMA
     Dosage: UNK
     Route: 048
     Dates: start: 20091020, end: 20091110
  4. ERLOTINIB HYDROCHLORIDE [Suspect]
     Dosage: 200 MG, UID/QD
     Route: 048
     Dates: start: 20110428

REACTIONS (1)
  - DISEASE PROGRESSION [None]
